FAERS Safety Report 14699177 (Version 3)
Quarter: 2025Q2

REPORT INFORMATION
  Report Type: Spontaneous
  Country: DE (occurrence: DE)
  Receive Date: 20180330
  Receipt Date: 20250519
  Transmission Date: 20250716
  Serious: Yes (Hospitalization, Other)
  Sender: BAUSCH AND LOMB
  Company Number: DE-AMGEN-DEUNI2018031516

PATIENT
  Age: 68 Year
  Sex: Female
  Weight: 58 kg

DRUGS (8)
  1. DEXAMETHASONE [Suspect]
     Active Substance: DEXAMETHASONE
     Indication: Plasma cell myeloma
     Route: 065
     Dates: start: 20180212
  2. CARFILZOMIB [Suspect]
     Active Substance: CARFILZOMIB
     Indication: Plasma cell myeloma
     Route: 042
     Dates: start: 20180212, end: 20180213
  3. CARFILZOMIB [Suspect]
     Active Substance: CARFILZOMIB
     Route: 042
     Dates: start: 20180219
  4. LENALIDOMIDE [Suspect]
     Active Substance: LENALIDOMIDE
     Indication: Plasma cell myeloma
     Route: 065
     Dates: start: 20180212, end: 20180618
  5. ENOXAPARIN SODIUM [Concomitant]
     Active Substance: ENOXAPARIN SODIUM
     Indication: Prophylaxis
     Dosage: 40 MILLIGRAM, QD
     Dates: start: 20180212, end: 20180522
  6. ACICLOVIR RATIOPHARM [Concomitant]
     Indication: Prophylaxis
     Dosage: 400 MILLIGRAM, TID
     Dates: start: 20180212, end: 20180917
  7. DUO [Concomitant]
     Indication: Prophylaxis
  8. PRAXIS [Concomitant]
     Indication: Prophylaxis

REACTIONS (3)
  - Leukopenia [Not Recovered/Not Resolved]
  - Anaemia [Not Recovered/Not Resolved]
  - Intentional product misuse [Unknown]

NARRATIVE: CASE EVENT DATE: 20180226
